FAERS Safety Report 9230308 (Version 1)
Quarter: 2013Q2

REPORT INFORMATION
  Report Type: Spontaneous
  Country: MX (occurrence: MX)
  Receive Date: 20130415
  Receipt Date: 20130415
  Transmission Date: 20140414
  Serious: Yes (Other)
  Sender: FDA-Public Use
  Company Number: PHHY2013MX035787

PATIENT
  Age: 54 Year
  Sex: Female

DRUGS (1)
  1. CO-DIOVAN [Suspect]
     Indication: HYPERTENSION
     Dosage: 1 DF, (VALSARTAN 150MG AND HYDROCHLOROTHIAZIDE 12.5MG) DAILY
     Route: 048
     Dates: start: 20130103

REACTIONS (2)
  - Kidney infection [Recovered/Resolved]
  - Local swelling [Recovered/Resolved]
